FAERS Safety Report 5456730-6 (Version None)
Quarter: 2007Q3

REPORT INFORMATION
  Report Type: 
  Country: None (occurrence: None)
  Receive Date: 20070918
  Receipt Date: 20070228
  Transmission Date: 20080115
  Serious: Yes (Other)
  Sender: FDA-Public Use
  Company Number: US-ASTRAZENECA-2006UW25953

PATIENT
  Age: 14795 Day
  Sex: Male
  Weight: 84.1 kg

DRUGS (6)
  1. SEROQUEL [Suspect]
     Indication: SCHIZOPHRENIA
     Dosage: 25 TO 200 MG
     Route: 048
     Dates: start: 20040914, end: 20060223
  2. SEROQUEL [Suspect]
     Indication: DEPRESSION
     Dosage: 25 TO 200 MG
     Route: 048
     Dates: start: 20040914, end: 20060223
  3. SEROQUEL [Suspect]
     Indication: BIPOLAR DISORDER
     Dosage: 25 TO 200 MG
     Route: 048
     Dates: start: 20040914, end: 20060223
  4. ZYPREXA [Concomitant]
     Dates: start: 20030522
  5. FLAVOXAMINE [Concomitant]
     Dates: start: 20030522
  6. HYDROXYZINE [Concomitant]
     Dates: start: 20030522

REACTIONS (2)
  - DIABETES MELLITUS [None]
  - KETOACIDOSIS [None]
